FAERS Safety Report 6825174-4 (Version None)
Quarter: 2010Q3

REPORT INFORMATION
  Report Type: 
  Country: None (occurrence: None)
  Receive Date: 20100708
  Receipt Date: 20070123
  Transmission Date: 20110219
  Serious: Yes (Other)
  Sender: FDA-Public Use
  Company Number: US-PFIZER INC-2006150109

PATIENT
  Sex: Female
  Weight: 70.3 kg

DRUGS (9)
  1. CHANTIX [Suspect]
     Indication: SMOKING CESSATION THERAPY
     Route: 048
     Dates: start: 20061201
  2. ZYRTEC [Suspect]
  3. DILTIAZEM [Concomitant]
  4. TRIAMTERENE [Concomitant]
  5. PREMARIN [Concomitant]
  6. POTASSIUM CHLORIDE [Concomitant]
  7. SOMA [Concomitant]
  8. OXYCONTIN [Concomitant]
  9. CYMBALTA [Concomitant]

REACTIONS (6)
  - ABNORMAL DREAMS [None]
  - ASTHENIA [None]
  - CONVULSION [None]
  - DIZZINESS [None]
  - NERVOUSNESS [None]
  - POOR QUALITY SLEEP [None]
